FAERS Safety Report 7628360-9 (Version None)
Quarter: 2011Q3

REPORT INFORMATION
  Report Type: 
  Country: None (occurrence: None)
  Receive Date: 20110711
  Receipt Date: 20110624
  Transmission Date: 20111222
  Serious: Yes (Life-Threatening)
  Sender: FDA-Public Use
  Company Number: 2011029019

PATIENT
  Age: 75 Year
  Sex: Male

DRUGS (2)
  1. ALBUMINAR-5 [Suspect]
  2. ALBUMINAR-5 [Suspect]
     Indication: HYPOALBUMINAEMIA
     Dosage: INTRAVENOUS
     Route: 042
     Dates: start: 20110618, end: 20110623

REACTIONS (4)
  - PYREXIA [None]
  - HEPATIC FUNCTION ABNORMAL [None]
  - ALANINE AMINOTRANSFERASE INCREASED [None]
  - ASPARTATE AMINOTRANSFERASE INCREASED [None]
